FAERS Safety Report 6002008-1 (Version None)
Quarter: 2008Q4

REPORT INFORMATION
  Report Type: 
  Country: None (occurrence: None)
  Receive Date: 20081212
  Receipt Date: 20081127
  Transmission Date: 20090506
  Serious: Yes (Other)
  Sender: FDA-Public Use
  Company Number: KV200800876

PATIENT
  Sex: Female

DRUGS (1)
  1. PROPAFENONE HCL [Suspect]
     Indication: ATRIAL FIBRILLATION

REACTIONS (11)
  - BACK PAIN [None]
  - BREAST PAIN [None]
  - FATIGUE [None]
  - FEELING HOT [None]
  - FREQUENT BOWEL MOVEMENTS [None]
  - LUNG NEOPLASM MALIGNANT [None]
  - NAUSEA [None]
  - NEOPLASM MALIGNANT [None]
  - PAIN IN EXTREMITY [None]
  - POLLAKIURIA [None]
  - RASH [None]
